FAERS Safety Report 26051990 (Version 1)
Quarter: 2025Q4

REPORT INFORMATION
  Report Type: Spontaneous
  Country: US (occurrence: US)
  Receive Date: 20251117
  Receipt Date: 20251117
  Transmission Date: 20260117
  Serious: No
  Sender: ALVOGEN
  Company Number: US-ALVOGEN-2025098207

PATIENT
  Sex: Female

DRUGS (1)
  1. TERIPARATIDE [Suspect]
     Active Substance: TERIPARATIDE
     Indication: Bone disorder
     Dosage: STRENGTH: 6.20 MCG/2.48 ML (250 MCG/ML);?EXP DATE: OCT-2025
     Dates: start: 202408

REACTIONS (6)
  - Device malfunction [Unknown]
  - Device operational issue [Unknown]
  - Product odour abnormal [Unknown]
  - Device defective [Unknown]
  - Product use in unapproved indication [Unknown]
  - No adverse event [Unknown]

NARRATIVE: CASE EVENT DATE: 20240801
